FAERS Safety Report 5922878-2 (Version None)
Quarter: 2008Q4

REPORT INFORMATION
  Report Type: 
  Country: None (occurrence: None)
  Receive Date: 20081017
  Receipt Date: 20081015
  Transmission Date: 20090506
  Serious: Yes (Life-Threatening, Other)
  Sender: FDA-Public Use
  Company Number: US-ABBOTT-08P-163-0482220-00

PATIENT
  Age: 56 Year
  Sex: Male

DRUGS (2)
  1. SIMCOR [Suspect]
     Indication: DYSLIPIDAEMIA
     Dosage: 500/20MG DAILY
     Dates: start: 20080501, end: 20080929
  2. SIMCOR [Suspect]
     Indication: HIGH DENSITY LIPOPROTEIN DECREASED

REACTIONS (3)
  - CYANOSIS [None]
  - HYPOTENSION [None]
  - RASH [None]
